FAERS Safety Report 12753124 (Version 1)
Quarter: 2016Q3

REPORT INFORMATION
  Report Type: Spontaneous
  Country: US (occurrence: US)
  Receive Date: 20160915
  Receipt Date: 20160915
  Transmission Date: 20161109
  Serious: No
  Sender: FDA-Public Use
  Company Number: None

PATIENT
  Age: 87 Year
  Sex: Female

DRUGS (1)
  1. PROCRIT [Suspect]
     Active Substance: ERYTHROPOIETIN
     Indication: PLASMA CELL MYELOMA
     Route: 058
     Dates: start: 20160607

REACTIONS (3)
  - Pain in extremity [None]
  - Thrombosis [None]
  - Peripheral swelling [None]

NARRATIVE: CASE EVENT DATE: 20160715
